FAERS Safety Report 26188789 (Version 1)
Quarter: 2025Q4

REPORT INFORMATION
  Report Type: Report from Study
  Country: EU (occurrence: EU)
  Receive Date: 20251222
  Receipt Date: 20251222
  Transmission Date: 20260118
  Serious: Yes (Other)
  Sender: JOHNSON AND JOHNSON
  Company Number: EU-JNJFOC-20251223066

PATIENT
  Age: 77 Year
  Sex: Female

DRUGS (1)
  1. TECLISTAMAB [Suspect]
     Active Substance: TECLISTAMAB
     Indication: Plasma cell myeloma refractory
     Dates: start: 20241209, end: 20250707

REACTIONS (6)
  - Pneumonia [Recovered/Resolved]
  - Epstein-Barr virus infection reactivation [Recovering/Resolving]
  - Diarrhoea [Recovered/Resolved]
  - Bacterial infection [Unknown]
  - COVID-19 [Recovering/Resolving]
  - Viral infection [Unknown]

NARRATIVE: CASE EVENT DATE: 20250106
